FAERS Safety Report 8828080 (Version 2)
Quarter: 2013Q2

REPORT INFORMATION
  Report Type: Report from Study
  Country: JP (occurrence: JP)
  Receive Date: 20121008
  Receipt Date: 20130417
  Transmission Date: 20140414
  Serious: Yes (Other)
  Sender: FDA-Public Use
  Company Number: PHHY2012JP085070

PATIENT
  Sex: Female
  Weight: 45 kg

DRUGS (1)
  1. SANDOSTATIN LAR [Suspect]
     Indication: PANCREATIC NEUROENDOCRINE TUMOUR
     Dosage: UNK
     Route: 030
     Dates: start: 20110607, end: 20111222

REACTIONS (1)
  - Bile duct obstruction [Unknown]
